FAERS Safety Report 5018668-8 (Version None)
Quarter: 2006Q2

REPORT INFORMATION
  Report Type: 
  Country: None (occurrence: None)
  Receive Date: 20060530
  Receipt Date: 20060519
  Transmission Date: 20061013
  Serious: Yes (Other)
  Sender: FDA-Public Use
  Company Number: S06-USA-01912-01

PATIENT
  Age: 67 Year
  Sex: Male

DRUGS (5)
  1. THYROID TAB [Suspect]
     Indication: HYPOTHYROIDISM
     Dosage: 60 MG QD PO
     Route: 048
     Dates: start: 20060425
  2. TARKA [Suspect]
     Indication: BLOOD PRESSURE
     Dates: start: 20060425, end: 20060427
  3. DIOVAN [Concomitant]
  4. BROMALINE [Concomitant]
  5. VITAMINS NOS [Concomitant]

REACTIONS (9)
  - ARTHRALGIA [None]
  - BLOOD PRESSURE DECREASED [None]
  - BLOOD PRESSURE FLUCTUATION [None]
  - BLOOD UREA INCREASED [None]
  - BLOOD UREA NITROGEN/CREATININE RATIO INCREASED [None]
  - C-REACTIVE PROTEIN INCREASED [None]
  - CHONDROCALCINOSIS PYROPHOSPHATE [None]
  - CONDITION AGGRAVATED [None]
  - OEDEMA PERIPHERAL [None]
